FAERS Safety Report 23276824 (Version 1)
Quarter: 2023Q4

REPORT INFORMATION
  Report Type: Spontaneous
  Country: FR (occurrence: FR)
  Receive Date: 20231208
  Receipt Date: 20231208
  Transmission Date: 20240110
  Serious: Yes (Other)
  Sender: FDA-Public Use
  Company Number: None

PATIENT
  Age: 20 Year
  Sex: Male
  Weight: 72 kg

DRUGS (11)
  1. LIDOCAINE [Suspect]
     Active Substance: LIDOCAINE
     Indication: Anaesthesia
     Dosage: UNKNOWN
     Route: 042
     Dates: start: 20230622, end: 20230622
  2. ROPIVACAINE HYDROCHLORIDE [Suspect]
     Active Substance: ROPIVACAINE HYDROCHLORIDE
     Indication: Anaesthesia
     Route: 014
     Dates: start: 20230622, end: 20230622
  3. PROPOFOL LIPURO [Suspect]
     Active Substance: PROPOFOL
     Indication: Anaesthesia
     Dosage: 330 MG
     Route: 042
     Dates: start: 20230622, end: 20230622
  4. DEXAMETHASONE [Suspect]
     Active Substance: DEXAMETHASONE
     Indication: Anaesthesia
     Route: 042
     Dates: start: 20230622, end: 20230622
  5. NEFOPAM HYDROCHLORIDE [Suspect]
     Active Substance: NEFOPAM HYDROCHLORIDE
     Indication: Anaesthesia
     Route: 042
     Dates: start: 20230622, end: 20230622
  6. ROCURONIUM BROMIDE [Suspect]
     Active Substance: ROCURONIUM BROMIDE
     Indication: Anaesthesia
     Route: 042
     Dates: start: 20230622, end: 20230622
  7. KETOPROFEN [Suspect]
     Active Substance: KETOPROFEN
     Indication: Anaesthetic premedication
     Dosage: 100 MG
     Route: 048
     Dates: start: 20230622, end: 20230622
  8. BRIDION [Suspect]
     Active Substance: SUGAMMADEX
     Indication: Anaesthesia
     Dosage: 200 MG
     Route: 042
     Dates: start: 20230622, end: 20230622
  9. TRAMADOL HYDROCHLORIDE [Suspect]
     Active Substance: TRAMADOL HYDROCHLORIDE
     Indication: Anaesthesia
     Dosage: 100 MG
     Route: 042
     Dates: start: 20230622, end: 20230622
  10. SUFENTANIL [Suspect]
     Active Substance: SUFENTANIL
     Indication: Anaesthesia
     Route: 042
     Dates: start: 20230622, end: 20230622
  11. CEFAZOLIN SODIUM [Suspect]
     Active Substance: CEFAZOLIN SODIUM
     Indication: Anaesthesia
     Route: 042
     Dates: start: 20230622, end: 20230622

REACTIONS (1)
  - Anaphylactic reaction [Recovered/Resolved]

NARRATIVE: CASE EVENT DATE: 20230622
